FAERS Safety Report 4454025-0 (Version None)
Quarter: 2004Q3

REPORT INFORMATION
  Report Type: 
  Country: None (occurrence: None)
  Receive Date: 20040826
  Receipt Date: 20040507
  Transmission Date: 20050211
  Serious: No
  Sender: FDA-Public Use
  Company Number: WAES 0309USA01283

PATIENT
  Sex: Female
  Weight: 87.5442 kg

DRUGS (4)
  1. ZETIA [Suspect]
     Indication: LOW DENSITY LIPOPROTEIN INCREASED
     Dosage: 10 MG, DAILY, PO
     Route: 048
     Dates: start: 20021101, end: 20021201
  2. ECOTRIN [Concomitant]
  3. MAXAIR [Concomitant]
  4. TOPROL-XL [Concomitant]

REACTIONS (1)
  - AMNESIA [None]
